FAERS Safety Report 5718474-2 (Version None)
Quarter: 2008Q2

REPORT INFORMATION
  Report Type: 
  Country: None (occurrence: None)
  Receive Date: 20080425
  Receipt Date: 20080417
  Transmission Date: 20081010
  Serious: Yes (Other)
  Sender: FDA-Public Use
  Company Number: US-PFIZER INC-2008019439

PATIENT
  Sex: Female

DRUGS (2)
  1. XALATAN [Suspect]
     Indication: OCULAR HYPERTENSION
  2. LIPITOR [Concomitant]

REACTIONS (2)
  - INTRAOCULAR PRESSURE INCREASED [None]
  - MEDICATION ERROR [None]
